FAERS Safety Report 17855280 (Version 3)
Quarter: 2020Q3

REPORT INFORMATION
  Report Type: Spontaneous
  Country: US (occurrence: US)
  Receive Date: 20200603
  Receipt Date: 20200706
  Transmission Date: 20201103
  Serious: Yes (Hospitalization, Other)
  Sender: FDA-Public Use
  Company Number: US-JNJFOC-20200602601

PATIENT
  Age: 23 Year
  Sex: Female
  Weight: 90.8 kg

DRUGS (8)
  1. BENADRYL [Concomitant]
     Active Substance: DIPHENHYDRAMINE HYDROCHLORIDE
  2. HALDOL [Suspect]
     Active Substance: HALOPERIDOL
     Dosage: VIAL (AMPULE)
     Route: 030
     Dates: start: 20200224
  3. HALDOL [Suspect]
     Active Substance: HALOPERIDOL
     Indication: DEPRESSION
     Dosage: VIAL
     Route: 030
  4. PROZAC [Concomitant]
     Active Substance: FLUOXETINE HYDROCHLORIDE
  5. HALDOL DECANOATE [Suspect]
     Active Substance: HALOPERIDOL DECANOATE
     Indication: DEPRESSION
     Route: 030
     Dates: start: 20200224
  6. ATIVAN [Concomitant]
     Active Substance: LORAZEPAM
     Indication: PRODUCT USED FOR UNKNOWN INDICATION
     Route: 030
  7. HALDOL [Suspect]
     Active Substance: HALOPERIDOL
     Route: 030
     Dates: start: 20200311
  8. ABILIFY MAINTENA [Suspect]
     Active Substance: ARIPIPRAZOLE
     Indication: PRODUCT USED FOR UNKNOWN INDICATION
     Route: 065

REACTIONS (17)
  - Gait disturbance [Recovering/Resolving]
  - Appetite disorder [Unknown]
  - Hypoacusis [Not Recovered/Not Resolved]
  - Menstruation irregular [Recovering/Resolving]
  - Visual impairment [Recovering/Resolving]
  - Neuropathy peripheral [Unknown]
  - Reduced facial expression [Unknown]
  - Palpitations [Recovering/Resolving]
  - Hospitalisation [Unknown]
  - Miosis [Unknown]
  - Eye disorder [Unknown]
  - Dystonia [Recovering/Resolving]
  - Tremor [Not Recovered/Not Resolved]
  - Mobility decreased [Unknown]
  - Parosmia [Not Recovered/Not Resolved]
  - Taste disorder [Not Recovered/Not Resolved]
  - Pharyngeal swelling [Recovering/Resolving]

NARRATIVE: CASE EVENT DATE: 2020
